FAERS Safety Report 17160247 (Version 1)
Quarter: 2019Q4

REPORT INFORMATION
  Report Type: Spontaneous
  Country: MY (occurrence: MY)
  Receive Date: 20191216
  Receipt Date: 20191216
  Transmission Date: 20200122
  Serious: Yes (Death, Hospitalization)
  Sender: FDA-Public Use
  Company Number: MY-AMNEAL PHARMACEUTICALS-2019-AMRX-03199

PATIENT
  Age: 30 Year
  Sex: Male

DRUGS (1)
  1. METHITEST [Suspect]
     Active Substance: METHYLTESTOSTERONE
     Indication: PRODUCT USED FOR UNKNOWN INDICATION
     Dosage: 750 MILLIGRAM FORTNIGHTLY
     Route: 030

REACTIONS (3)
  - Anaplastic large cell lymphoma T- and null-cell types stage IV [Fatal]
  - Disseminated intravascular coagulation [Fatal]
  - Multiple organ dysfunction syndrome [Fatal]
